FAERS Safety Report 8779404 (Version 1)
Quarter: 2012Q4

REPORT INFORMATION
  Report Type: 
  Country: AU (occurrence: AU)
  Receive Date: 20120912
  Receipt Date: 20120912
  Transmission Date: 20130627
  Serious: Yes (Hospitalization, Other)
  Sender: FDA-Public Use
  Company Number: AU-PFIZER INC-2012195004

PATIENT
  Sex: Female

DRUGS (1)
  1. EFEXOR XR [Suspect]
     Indication: DEPRESSION
     Dosage: 75 mg daily
     Route: 048
     Dates: start: 20120711, end: 20120716

REACTIONS (8)
  - Vision blurred [Recovered/Resolved]
  - Headache [Recovered/Resolved]
  - Depersonalisation [Recovered/Resolved]
  - Paranoia [Recovered/Resolved]
  - Mental impairment [Recovered/Resolved]
  - Dysarthria [Recovered/Resolved]
  - Fatigue [Recovered/Resolved]
  - Dyskinesia [Recovered/Resolved]
